FAERS Safety Report 6192602-X (Version None)
Quarter: 2009Q2

REPORT INFORMATION
  Report Type: 
  Country: None (occurrence: None)
  Receive Date: 20090518
  Receipt Date: 20090514
  Transmission Date: 20091009
  Serious: Yes (Life-Threatening, Hospitalization, Other)
  Sender: FDA-Public Use
  Company Number: NL-BAYER-200911364GPV

PATIENT
  Age: 61 Year
  Sex: Female
  Weight: 62 kg

DRUGS (13)
  1. SORAFENIB [Suspect]
     Indication: NON-SMALL CELL LUNG CANCER
     Dosage: TOTAL DAILY DOSE: 800 MG
     Route: 048
     Dates: start: 20081222, end: 20090121
  2. CISPLATIN [Suspect]
     Indication: NON-SMALL CELL LUNG CANCER
     Dosage: UNIT DOSE: 75 MG/M2
     Route: 042
     Dates: start: 20081222, end: 20081222
  3. CISPLATIN [Suspect]
     Dosage: UNIT DOSE: 75 MG/M2
     Route: 042
     Dates: start: 20090112, end: 20090112
  4. GEMZAR [Suspect]
     Indication: NON-SMALL CELL LUNG CANCER
     Dosage: UNIT DOSE: 1250 MG/M2
     Route: 042
     Dates: start: 20081222, end: 20081222
  5. GEMZAR [Suspect]
     Dosage: UNIT DOSE: 1250 MG/M2
     Route: 042
     Dates: start: 20090112, end: 20090112
  6. GEMZAR [Suspect]
     Dosage: UNIT DOSE: 1250 MG/M2
     Route: 042
     Dates: start: 20081229, end: 20081229
  7. OXAZEPAM [Concomitant]
     Indication: PROPHYLAXIS
     Route: 065
     Dates: start: 20081201
  8. EPREX [Concomitant]
     Indication: ANAEMIA PROPHYLAXIS
     Route: 065
     Dates: start: 20081222
  9. PRIMPERAN [Concomitant]
     Indication: PROPHYLAXIS OF NAUSEA AND VOMITING
     Route: 065
     Dates: start: 20081222
  10. POTASSIUM CHLORIDE [Concomitant]
     Indication: HYPOKALAEMIA
     Route: 065
     Dates: start: 20090118, end: 20090126
  11. OXYGEN [Concomitant]
     Indication: OXYGEN SATURATION DECREASED
     Dosage: PUMP
     Route: 065
     Dates: start: 20090118, end: 20090120
  12. FENTANYL [Concomitant]
     Indication: DYSPNOEA
     Route: 065
     Dates: start: 20090120
  13. CEFUROXIME [Concomitant]
     Indication: PNEUMONIA
     Route: 065
     Dates: start: 20090122, end: 20090129

REACTIONS (2)
  - DIABETES MELLITUS [None]
  - PULMONARY EMBOLISM [None]
